FAERS Safety Report 25539552 (Version 1)
Quarter: 2025Q3

REPORT INFORMATION
  Report Type: Spontaneous
  Country: EU (occurrence: EU)
  Receive Date: 20250710
  Receipt Date: 20250710
  Transmission Date: 20251021
  Serious: Yes (Other)
  Sender: CHEPLAPHARM
  Company Number: None

PATIENT
  Age: 44 Year
  Sex: Male

DRUGS (7)
  1. QUETIAPINE [Suspect]
     Active Substance: QUETIAPINE
     Indication: Bipolar II disorder
     Route: 048
  2. VENLAFAXINE [Suspect]
     Active Substance: VENLAFAXINE HYDROCHLORIDE
     Indication: Bipolar II disorder
     Dosage: LP?DAILY DOSE: 75 MILLIGRAM
     Route: 048
  3. BUSPIRONE [Suspect]
     Active Substance: BUSPIRONE HYDROCHLORIDE
     Dosage: DAILY DOSE: 30 MILLIGRAM
  4. OXAZEPAM [Suspect]
     Active Substance: OXAZEPAM
     Dosage: DAILY DOSE: 60 MILLIGRAM
  5. ZOPICLONE [Suspect]
     Active Substance: ZOPICLONE
     Dosage: DAILY DOSE: 7.5 MILLIGRAM
  6. MELATONIN [Suspect]
     Active Substance: MELATONIN
     Dosage: DAILY DOSE: 2 MILLIGRAM
  7. DISULFIRAM [Suspect]
     Active Substance: DISULFIRAM

REACTIONS (2)
  - Angle closure glaucoma [Not Recovered/Not Resolved]
  - Optic neuritis [Unknown]

NARRATIVE: CASE EVENT DATE: 20250501
